FAERS Safety Report 5116402-4 (Version None)
Quarter: 2006Q3

REPORT INFORMATION
  Report Type: 
  Country: None (occurrence: None)
  Receive Date: 20060928
  Receipt Date: 20060921
  Transmission Date: 20061208
  Serious: Yes (Hospitalization, Other)
  Sender: FDA-Public Use
  Company Number: US-AVENTIS-200617977US

PATIENT
  Age: 54 Year
  Sex: Female

DRUGS (1)
  1. LASIX [Suspect]
     Indication: FLUID RETENTION

REACTIONS (2)
  - HYPOAESTHESIA [None]
  - HYPOKALAEMIA [None]
